FAERS Safety Report 5967465-5 (Version None)
Quarter: 2008Q4

REPORT INFORMATION
  Report Type: 
  Country: None (occurrence: None)
  Receive Date: 20081125
  Receipt Date: 20081118
  Transmission Date: 20090506
  Serious: Yes (Other)
  Sender: FDA-Public Use
  Company Number: PL-PFIZER INC-2008093476

PATIENT
  Age: 41 Year
  Sex: Female
  Weight: 74 kg

DRUGS (1)
  1. DEPO-MEDROL [Suspect]
     Indication: INFLAMMATION
     Dates: start: 20081029, end: 20081029

REACTIONS (1)
  - MUSCULOSKELETAL STIFFNESS [None]
